FAERS Safety Report 4291520-1 (Version None)
Quarter: 2004Q1

REPORT INFORMATION
  Report Type: 
  Country: None (occurrence: None)
  Receive Date: 20040126
  Receipt Date: 20030926
  Transmission Date: 20041129
  Serious: No
  Sender: FDA-Public Use
  Company Number: USA030947328

PATIENT
  Age: 80 Year
  Sex: Female

DRUGS (1)
  1. FORTEO [Suspect]
     Indication: OSTEOPOROSIS

REACTIONS (5)
  - ANOREXIA [None]
  - FEELING ABNORMAL [None]
  - HYPOKINESIA [None]
  - NAUSEA [None]
  - SENSORY DISTURBANCE [None]
